FAERS Safety Report 5778368-3 (Version None)
Quarter: 2008Q2

REPORT INFORMATION
  Report Type: 
  Country: None (occurrence: None)
  Receive Date: 20080618
  Receipt Date: 20080618
  Transmission Date: 20081010
  Serious: Yes (Hospitalization)
  Sender: FDA-Public Use
  Company Number: None

PATIENT
  Sex: Female
  Weight: 68.49 kg

DRUGS (2)
  1. TEMOZOLOMIDE [Suspect]
     Dosage: 3640 MG
  2. DECADRON [Concomitant]

REACTIONS (5)
  - ASTHENIA [None]
  - CONFUSIONAL STATE [None]
  - FATIGUE [None]
  - LETHARGY [None]
  - MENTAL STATUS CHANGES [None]
